FAERS Safety Report 4874163-8 (Version None)
Quarter: 2006Q1

REPORT INFORMATION
  Report Type: 
  Country: None (occurrence: None)
  Receive Date: 20060106
  Receipt Date: 20060102
  Transmission Date: 20060701
  Serious: Yes (Death, Hospitalization)
  Sender: FDA-Public Use
  Company Number: PT-GLAXOSMITHKLINE-B0405268A

PATIENT
  Age: 48 Year
  Sex: Male
  Weight: 75 kg

DRUGS (13)
  1. ZIAGEN [Suspect]
     Indication: HIV INFECTION
     Dosage: 600MG PER DAY
     Route: 048
     Dates: start: 20050930, end: 20050930
  2. ASPIRIN [Concomitant]
     Route: 048
     Dates: start: 20030101
  3. CLONIDINE [Concomitant]
     Route: 048
     Dates: start: 20050928, end: 20050930
  4. LAMIVUDINE + ZIDOVUDINE [Concomitant]
     Indication: HIV INFECTION
     Route: 048
     Dates: start: 20030601, end: 20050929
  5. PERINDOPRIL TERT-BUTYLAMINE [Concomitant]
     Route: 048
     Dates: start: 20040101, end: 20050928
  6. LAMIVUDINE [Concomitant]
     Indication: HIV INFECTION
     Route: 048
     Dates: start: 20050930, end: 20050930
  7. RILMENIDINE [Concomitant]
     Route: 048
     Dates: start: 20030101
  8. FUROSEMIDE [Concomitant]
     Route: 048
     Dates: start: 20040101
  9. METOPROLOL [Concomitant]
     Route: 048
     Dates: start: 20040101
  10. AMLODIPINE [Concomitant]
     Route: 048
     Dates: start: 20040101
  11. IRBESARTAN - HYDROCHLOROTHIAZIDE [Concomitant]
     Route: 048
     Dates: start: 20040101, end: 20050928
  12. TENOFOVIR [Concomitant]
     Indication: HIV INFECTION
     Route: 048
     Dates: start: 20030601, end: 20050929
  13. EFAVIRENZ [Concomitant]
     Indication: HIV INFECTION
     Route: 048
     Dates: start: 20050930, end: 20050930

REACTIONS (6)
  - ACUTE RESPIRATORY DISTRESS SYNDROME [None]
  - DYSPNOEA EXACERBATED [None]
  - MULTI-ORGAN FAILURE [None]
  - PNEUMONIA BACTERIAL [None]
  - PULMONARY FIBROSIS [None]
  - SEPTIC SHOCK [None]
